FAERS Safety Report 9226744 (Version 1)
Quarter: 2013Q2

REPORT INFORMATION
  Report Type: Spontaneous
  Country: US (occurrence: None)
  Receive Date: 20130410
  Receipt Date: 20130410
  Transmission Date: 20140414
  Serious: Yes (Other)
  Sender: FDA-Public Use
  Company Number: 13-01572

PATIENT
  Age: 55 Year
  Sex: Female
  Weight: 75.3 kg

DRUGS (2)
  1. ASTHMANEFRIN INHALATION SOLUTION, 2.25% [Suspect]
     Indication: BRONCHITIS
     Dates: start: 201304
  2. ASTHMANEFRIN INHALATION SOLUTION, 2.25% [Suspect]
     Indication: ASTHMA
     Dates: start: 201304

REACTIONS (1)
  - Haemoptysis [None]
